FAERS Safety Report 7290318-X (Version None)
Quarter: 2011Q1

REPORT INFORMATION
  Report Type: 
  Country: None (occurrence: None)
  Receive Date: 20110214
  Receipt Date: 20110202
  Transmission Date: 20110831
  Serious: Yes (Hospitalization)
  Sender: FDA-Public Use
  Company Number: PHHY2009IT56976

PATIENT
  Sex: Male
  Weight: 90 kg

DRUGS (13)
  1. CARDURA [Concomitant]
     Indication: HYPERTENSION
     Dates: start: 20090216
  2. ENAPREN [Concomitant]
     Indication: HYPERTENSION
     Dosage: 20 MG, UNK
     Dates: start: 20080625
  3. PLAVIX [Concomitant]
     Indication: CORONARY ARTERY DISEASE
     Dosage: 75 MG, UNK
     Dates: start: 20070417
  4. VYTORIN [Concomitant]
     Dosage: 10/20
     Dates: start: 20100827
  5. ALISKIREN [Suspect]
     Indication: HYPERTENSION
     Dosage: 150 MG, UNK
     Route: 048
     Dates: start: 20091022, end: 20091118
  6. KADIUR [Concomitant]
     Indication: HYPERTENSION
     Dosage: 5/50 MG
     Dates: start: 20080625
  7. ISMO [Concomitant]
     Indication: HYPERTENSION
     Dosage: 40 MG, UNK
     Dates: start: 20090216
  8. COAPROVEL [Concomitant]
     Indication: HYPERTENSION
     Dosage: 25/300 MG
     Dates: start: 20080625
  9. NORVASC [Concomitant]
     Indication: HYPERTENSION
     Dosage: 10 MG, UNK
     Dates: start: 20090216
  10. TORVAST [Concomitant]
     Indication: CORONARY ARTERY DISEASE
     Dosage: 40
     Dates: start: 20070417
  11. CARDURA [Concomitant]
     Dosage: 4 MG, UNK
     Dates: start: 20100317
  12. ATENOLOL [Concomitant]
     Indication: HYPERTENSION
     Dates: start: 20070417
  13. ALISKIREN [Suspect]
     Dosage: 300 MG, UNK
     Route: 048
     Dates: start: 20091213

REACTIONS (2)
  - ANGINA PECTORIS [None]
  - MYOCARDIAL ISCHAEMIA [None]
